FAERS Safety Report 14859888 (Version 5)
Quarter: 2024Q4

REPORT INFORMATION
  Report Type: Spontaneous
  Country: NL (occurrence: NL)
  Receive Date: 20180508
  Receipt Date: 20241129
  Transmission Date: 20250115
  Serious: Yes (Hospitalization, Other)
  Sender: MYLAN
  Company Number: None

PATIENT
  Age: 51 Year
  Sex: Male
  Weight: 86 kg

DRUGS (7)
  1. MERCAPTOPURINE [Suspect]
     Active Substance: MERCAPTOPURINE
     Indication: Colitis ulcerative
     Dosage: 150 MG (1.7 MG/KG), QD
     Route: 065
  2. MERCAPTOPURINE [Suspect]
     Active Substance: MERCAPTOPURINE
     Indication: Immunosuppression
     Dosage: 50 MG, 1X/DAY, QD
     Route: 065
  3. MERCAPTOPURINE [Suspect]
     Active Substance: MERCAPTOPURINE
     Dosage: 100 MG, QD (1.3 MG/ KG)
     Route: 065
  4. MERCAPTOPURINE [Suspect]
     Active Substance: MERCAPTOPURINE
     Dosage: DOSE REDUCED BY 25- 33 %
     Route: 065
  5. ALLOPURINOL [Suspect]
     Active Substance: ALLOPURINOL
     Indication: Colitis ulcerative
     Dosage: 100 MG, UNK
     Route: 065
  6. MESALAMINE [Suspect]
     Active Substance: MESALAMINE
     Indication: Colitis ulcerative
     Dosage: UNK
     Route: 054
  7. MESALAMINE [Suspect]
     Active Substance: MESALAMINE
     Indication: Colitis ulcerative
     Dosage: UNK
     Route: 048

REACTIONS (8)
  - Condition aggravated [Unknown]
  - Irritable bowel syndrome [Unknown]
  - Myelosuppression [Unknown]
  - Pyrexia [Unknown]
  - Anaemia [Recovered/Resolved]
  - Leukopenia [Recovering/Resolving]
  - Thrombocytopenia [Not Recovered/Not Resolved]
  - Off label use [Unknown]
